FAERS Safety Report 8304957-8 (Version None)
Quarter: 2012Q2

REPORT INFORMATION
  Report Type: 
  Country: None (occurrence: None)
  Receive Date: 20120411
  Receipt Date: 20120405
  Transmission Date: 20120825
  Serious: Yes (Hospitalization, Other)
  Sender: FDA-Public Use
  Company Number: 2012030752

PATIENT
  Age: 61 Year
  Sex: Female
  Weight: 143.7903 kg

DRUGS (20)
  1. HIZENTRA [Suspect]
     Indication: EMPHYSEMA
     Dosage: SEE IMAGE
     Route: 042
     Dates: start: 20070101
  2. HIZENTRA [Suspect]
     Indication: ALPHA-1 ANTI-TRYPSIN DEFICIENCY
     Dosage: SEE IMAGE
     Route: 042
     Dates: start: 20070101
  3. HIZENTRA [Suspect]
     Indication: EMPHYSEMA
     Dosage: SEE IMAGE
     Route: 042
     Dates: start: 20120314
  4. HIZENTRA [Suspect]
     Indication: ALPHA-1 ANTI-TRYPSIN DEFICIENCY
     Dosage: SEE IMAGE
     Route: 042
     Dates: start: 20120314
  5. HIZENTRA [Suspect]
     Indication: EMPHYSEMA
     Dosage: SEE IMAGE
     Route: 042
     Dates: start: 20120101
  6. HIZENTRA [Suspect]
     Indication: ALPHA-1 ANTI-TRYPSIN DEFICIENCY
     Dosage: SEE IMAGE
     Route: 042
     Dates: start: 20120101
  7. HIZENTRA [Suspect]
  8. LASIX [Concomitant]
  9. VITAMIN D [Concomitant]
  10. IPRATROPIUM ALBUTEROL (SALBUTAMOL W/IPRATROPIUM) [Concomitant]
  11. CARDIZEM [Concomitant]
  12. MULTIVITAMIN (ACCOMIN MULTIVITAMIN) [Concomitant]
  13. SINGULAIR [Concomitant]
  14. METFORMIN HCL [Concomitant]
  15. IBUPROFEN (ADVIL) [Concomitant]
  16. SODIUM CHLORIDE 0.9% [Concomitant]
  17. LISINOPRIL HCTZ (PRINZIDE /00977901/) [Concomitant]
  18. ZOCOR [Concomitant]
  19. HIZENTRA [Suspect]
  20. ADVAIR DISKUS 100/50 [Concomitant]

REACTIONS (6)
  - PNEUMONIA [None]
  - CONDITION AGGRAVATED [None]
  - RENAL FAILURE ACUTE [None]
  - CELLULITIS [None]
  - CHRONIC RESPIRATORY FAILURE [None]
  - CHRONIC OBSTRUCTIVE PULMONARY DISEASE [None]
